FAERS Safety Report 8495190-8 (Version None)
Quarter: 2012Q3

REPORT INFORMATION
  Report Type: 
  Country: None (occurrence: None)
  Receive Date: 20120709
  Receipt Date: 20120628
  Transmission Date: 20120928
  Serious: Yes (Hospitalization, Other)
  Sender: FDA-Public Use
  Company Number: JP-CELGENEUS-087-21880-12050546

PATIENT
  Age: 79 Year
  Sex: Female

DRUGS (14)
  1. DEXAMETHASONE [Suspect]
     Route: 042
     Dates: start: 20120327, end: 20120425
  2. OMEPRAZOLE [Concomitant]
     Dosage: 20 MILLIGRAM
     Route: 065
     Dates: start: 20120327
  3. METOPROLOL TARTRATE [Concomitant]
     Dosage: 120 MILLIGRAM
     Route: 065
     Dates: start: 20080825
  4. ASPIRIN [Concomitant]
     Route: 065
     Dates: start: 20120327
  5. INDOMETHACIN [Concomitant]
     Route: 065
     Dates: start: 20120415
  6. MAGNESIUM OXIDE [Concomitant]
     Dosage: 330 MILLIGRAM
     Route: 065
     Dates: start: 20080418
  7. ALFACALCIDOL [Concomitant]
     Dosage: .5 MILLIGRAM
     Route: 065
     Dates: start: 20080418
  8. DEXAMETHASONE SODIUM PHOSPHATE [Concomitant]
     Dosage: 6.6 MILLIGRAM
     Route: 065
     Dates: start: 20120327, end: 20120425
  9. REVLIMID [Suspect]
     Indication: MULTIPLE MYELOMA
     Dosage: 25 MILLIGRAM
     Route: 048
     Dates: start: 20120327, end: 20120430
  10. TOCOPHERYL NICOTINATE [Concomitant]
     Route: 065
     Dates: start: 20110902
  11. TOCOPHERYL NICOTINATE [Concomitant]
     Route: 065
     Dates: start: 20120418
  12. DEXAMETHASONE [Suspect]
     Indication: MULTIPLE MYELOMA
     Dosage: 28 MILLIGRAM
     Route: 048
     Dates: start: 20120327, end: 20120425
  13. REBAMIPIDE [Concomitant]
     Dosage: 100 MILLIGRAM
     Route: 065
     Dates: start: 20100507
  14. ELOTUZUMAB [Suspect]
     Indication: MULTIPLE MYELOMA
     Dosage: 543 MILLIGRAM
     Route: 041
     Dates: start: 20120327, end: 20120425

REACTIONS (3)
  - NEUROGENIC BLADDER [None]
  - PYELONEPHRITIS [None]
  - DEPRESSION [None]
